FAERS Safety Report 4515057-7 (Version None)
Quarter: 2004Q4

REPORT INFORMATION
  Report Type: 
  Country: None (occurrence: None)
  Receive Date: 20041201
  Receipt Date: 20041104
  Transmission Date: 20050328
  Serious: Yes (Life-Threatening, Hospitalization)
  Sender: FDA-Public Use
  Company Number: DE-MERCK-0411DEU00088

PATIENT
  Age: 77 Year
  Sex: Male
  Weight: 75 kg

DRUGS (7)
  1. VIOXX [Suspect]
     Indication: PAIN
     Route: 048
     Dates: start: 20010101, end: 20040901
  2. NATRILIX [Concomitant]
     Indication: HYPERTENSION
     Route: 065
  3. DELIX PLUS [Concomitant]
     Route: 065
  4. OMNIC [Concomitant]
     Indication: BENIGN PROSTATIC HYPERPLASIA
     Route: 065
  5. NORVASC [Concomitant]
     Indication: HYPERTENSION
     Route: 065
  6. KERLONE [Concomitant]
     Route: 065
     Dates: start: 20010705
  7. MARCUMAR [Concomitant]
     Indication: ARRHYTHMIA
     Route: 065
     Dates: start: 20010401

REACTIONS (2)
  - DIVERTICULITIS [None]
  - PERIPHERAL VASCULAR DISORDER [None]
